FAERS Safety Report 8506839-5 (Version None)
Quarter: 2012Q3

REPORT INFORMATION
  Report Type: 
  Country: None (occurrence: None)
  Receive Date: 20120712
  Receipt Date: 20120706
  Transmission Date: 20120928
  Serious: Yes (Other)
  Sender: FDA-Public Use
  Company Number: BR-PFIZER INC-2012118039

PATIENT
  Sex: Female

DRUGS (2)
  1. CYCLOPHOSPHAMIDE [Suspect]
     Indication: SYSTEMIC LUPUS ERYTHEMATOSUS
  2. PREMARIN [Suspect]
     Indication: OSTEOPOROSIS PROPHYLAXIS
     Dosage: 0.625 MG, UNK
     Route: 048
     Dates: start: 19980101

REACTIONS (5)
  - OVARIAN FAILURE [None]
  - INFERTILITY [None]
  - DRUG DEPENDENCE [None]
  - HORMONE LEVEL ABNORMAL [None]
  - SYSTEMIC LUPUS ERYTHEMATOSUS [None]
